FAERS Safety Report 10203646 (Version 2)
Quarter: 2014Q2

REPORT INFORMATION
  Report Type: Spontaneous
  Country: DE (occurrence: DE)
  Receive Date: 20140529
  Receipt Date: 20140630
  Transmission Date: 20141212
  Serious: Yes (Hospitalization)
  Sender: FDA-Public Use
  Company Number: DE-AMGEN-DEUSP2014038986

PATIENT
  Age: 20 Year
  Sex: Female
  Weight: 58 kg

DRUGS (17)
  1. NEULASTA [Suspect]
     Indication: PRODUCT USED FOR UNKNOWN INDICATION
     Dosage: 6 MG, UNK
     Route: 065
     Dates: start: 20140215
  2. ADRIAMYCIN                         /00330901/ [Suspect]
     Indication: HODGKIN^S DISEASE
     Dosage: 35 MG/M2, UNK
     Route: 065
     Dates: start: 20140305
  3. BLEOMYCIN [Suspect]
     Indication: HODGKIN^S DISEASE
     Dosage: 10 MG/M2, UNK
     Route: 065
     Dates: start: 20140305
  4. DACARBAZINE [Suspect]
     Indication: HODGKIN^S DISEASE
     Dosage: 0.6 MG/M2, UNK
     Route: 065
  5. PROCARBAZINE [Suspect]
     Indication: HODGKIN^S DISEASE
     Dosage: 100 MG/M2, UNK
     Route: 065
     Dates: start: 20140305
  6. ONCOVIN [Suspect]
     Indication: HODGKIN^S DISEASE
     Dosage: 1.4 MG/M2, UNK
     Route: 065
     Dates: start: 20140305
  7. VINBLASTIN [Suspect]
     Indication: HODGKIN^S DISEASE
     Dosage: 1.4 MG/M2, UNK
     Route: 065
  8. ETOPOSIDE [Suspect]
     Indication: HODGKIN^S DISEASE
     Dosage: 200 MG/M2, UNK
     Route: 065
     Dates: start: 20140305
  9. CYCLOPHOSPHAMIDE [Suspect]
     Indication: HODGKIN^S DISEASE
     Dosage: 1250 MG/M2, UNK
     Route: 065
     Dates: start: 20140305
  10. PREDNISONE [Suspect]
     Indication: HODGKIN^S DISEASE
     Dosage: 40 MG/M2, UNK
     Route: 065
     Dates: start: 20140305
  11. RITUXIMAB [Suspect]
     Indication: HODGKIN^S DISEASE
     Dosage: 0.6 MG/M2, UNK
     Route: 065
  12. EMEND                              /01627301/ [Suspect]
     Indication: PRODUCT USED FOR UNKNOWN INDICATION
     Dosage: 150 MG, UNK
     Route: 065
     Dates: start: 20140212
  13. VERATRIL [Suspect]
     Indication: PRODUCT USED FOR UNKNOWN INDICATION
     Dosage: 150 MG, UNK
     Route: 065
     Dates: start: 20140212
  14. UROMITEXAN [Suspect]
     Indication: PRODUCT USED FOR UNKNOWN INDICATION
     Dosage: UNK
     Route: 065
     Dates: start: 20140212
  15. TAVEGYL [Suspect]
     Indication: PRODUCT USED FOR UNKNOWN INDICATION
     Dosage: UNK
     Route: 065
     Dates: start: 20140212
  16. MERONEM [Concomitant]
     Dosage: UNK UNK, 1/DAILY
     Dates: end: 20140604
  17. METRONIDAZOLE [Concomitant]
     Dosage: UNK UNK, 1/DAILY
     Dates: end: 20140604

REACTIONS (2)
  - Febrile infection [Recovered/Resolved]
  - Bronchitis [Unknown]
